FAERS Safety Report 9470281 (Version 1)
Quarter: 2013Q3

REPORT INFORMATION
  Report Type: Spontaneous
  Country: US (occurrence: US)
  Receive Date: 20130822
  Receipt Date: 20130822
  Transmission Date: 20140515
  Serious: No
  Sender: FDA-Public Use
  Company Number: US-SANOFI-AVENTIS-2012SA049316

PATIENT
  Age: 77 Year
  Sex: Female

DRUGS (11)
  1. MULTAQ [Suspect]
     Indication: ATRIAL FIBRILLATION
     Route: 048
     Dates: start: 201204
  2. AUGMENTIN [Suspect]
     Indication: DIVERTICULITIS
     Route: 065
     Dates: start: 20120705
  3. COUMADIN [Concomitant]
  4. PRILOSEC [Concomitant]
  5. AMLODIPINE [Concomitant]
  6. ZOLPIDEM [Concomitant]
  7. PERCOCET [Concomitant]
  8. TYLENOL [Concomitant]
  9. LASIX [Concomitant]
  10. MULTIVITAMINS [Concomitant]
  11. PRAVASTATIN [Concomitant]

REACTIONS (2)
  - Medication residue present [Unknown]
  - Diarrhoea [Unknown]
